FAERS Safety Report 10310867 (Version 1)
Quarter: 2014Q3

REPORT INFORMATION
  Report Type: Spontaneous
  Country: GB (occurrence: None)
  Receive Date: 20140714
  Receipt Date: 20140714
  Transmission Date: 20150326
  Serious: Yes (Other)
  Sender: FDA-Public Use
  Company Number: HRA-CDB20140082

PATIENT
  Age: 25 Year
  Sex: Female
  Weight: 65.8 kg

DRUGS (1)
  1. ELLAONE [Suspect]
     Active Substance: ULIPRISTAL ACETATE
     Indication: POST COITAL CONTRACEPTION
     Dosage: 1 DOSAGE FORMS (1 DOSAGE FORMS, 1 IN 1 D), ORAL
     Route: 048
     Dates: start: 20140508, end: 20140508

REACTIONS (4)
  - Pregnancy after post coital contraception [None]
  - Ectopic pregnancy [None]
  - Abortion spontaneous [None]
  - Pregnancy [None]

NARRATIVE: CASE EVENT DATE: 20140529
